FAERS Safety Report 18635840 (Version 1)
Quarter: 2020Q4

REPORT INFORMATION
  Report Type: Spontaneous
  Country: JP (occurrence: JP)
  Receive Date: 20201218
  Receipt Date: 20201218
  Transmission Date: 20210114
  Serious: Yes (Other)
  Sender: FDA-Public Use
  Company Number: JP-ROCHE-2732374

PATIENT
  Age: 78 Year
  Sex: Female
  Weight: 35.8 kg

DRUGS (9)
  1. PREDNISOLONE. [Concomitant]
     Active Substance: PREDNISOLONE
     Dosage: DOSAGE IS UNCERTAIN.
     Route: 048
  2. FOLIAMIN [Concomitant]
     Active Substance: FOLIC ACID
     Dosage: DOSAGE IS UNCERTAIN.
     Route: 048
  3. DEXART [Concomitant]
     Active Substance: DEXAMETHASONE SODIUM PHOSPHATE
     Dosage: DOSAGE IS UNCERTAIN.
     Route: 065
  4. GRANISETRON [Concomitant]
     Active Substance: GRANISETRON
     Dosage: DOSAGE IS UNCERTAIN.
     Route: 065
  5. XELODA [Suspect]
     Active Substance: CAPECITABINE
     Indication: GASTRIC CANCER
     Dosage: DOSE INTERVAL UNCERTAINTY
     Route: 048
     Dates: start: 20200827
  6. DECADRON [Concomitant]
     Active Substance: DEXAMETHASONE
     Dosage: DOSAGE IS UNCERTAIN.
     Route: 048
  7. PRALIA [Concomitant]
     Active Substance: DENOSUMAB
     Dosage: DOSAGE IS UNCERTAIN.
     Route: 065
  8. ALFAROL [Concomitant]
     Active Substance: ALFACALCIDOL
     Dosage: DOSAGE IS UNCERTAIN.
     Route: 048
  9. OXALIPLATIN. [Suspect]
     Active Substance: OXALIPLATIN
     Indication: GASTRIC CANCER
     Dosage: DOSE INTERVAL UNCERTAINTY
     Route: 042
     Dates: start: 20200827

REACTIONS (2)
  - Visual field defect [Recovered/Resolved]
  - Eye symptom [Unknown]

NARRATIVE: CASE EVENT DATE: 20200827
